FAERS Safety Report 7081991-X (Version None)
Quarter: 2010Q4

REPORT INFORMATION
  Report Type: 
  Country: None (occurrence: None)
  Receive Date: 20101103
  Receipt Date: 20101025
  Transmission Date: 20110411
  Serious: Yes (Other)
  Sender: FDA-Public Use
  Company Number: BE-PFIZER INC-2010136067

PATIENT

DRUGS (1)
  1. GENOTONORM [Suspect]
     Dosage: UNK
     Dates: start: 19950101

REACTIONS (1)
  - LYMPHOMA [None]
